FAERS Safety Report 7142277-8 (Version None)
Quarter: 2010Q4

REPORT INFORMATION
  Report Type: 
  Country: None (occurrence: None)
  Receive Date: 20101207
  Receipt Date: 20101129
  Transmission Date: 20110411
  Serious: No
  Sender: FDA-Public Use
  Company Number: US-PFIZER INC-2010159837

PATIENT
  Sex: Male
  Weight: 72.6 kg

DRUGS (11)
  1. LYRICA [Suspect]
     Indication: RESTLESS LEGS SYNDROME
     Dosage: 50 MG, 1X/DAY
     Route: 048
     Dates: start: 20101001
  2. PREMARIN [Suspect]
     Indication: BLOOD TESTOSTERONE INCREASED
     Dosage: 3 MG, 1X/DAY
     Route: 048
     Dates: start: 20101103
  3. REQUIP [Suspect]
     Indication: RESTLESS LEGS SYNDROME
     Dosage: UNK
     Route: 048
     Dates: start: 20100301, end: 20101001
  4. BACLOFEN [Concomitant]
     Indication: RESTLESS LEGS SYNDROME
     Dosage: UNK
     Route: 048
     Dates: start: 20101001
  5. MIRALAX [Concomitant]
     Indication: ABDOMINAL DISCOMFORT
     Dosage: UNK
     Route: 048
  6. TAMSULOSIN HYDROCHLORIDE [Concomitant]
     Indication: URINARY INCONTINENCE
     Dosage: 0.4 MG, 1X/DAY
     Route: 048
  7. ECOSPRIN [Concomitant]
     Dosage: 81 MG, 1X/DAY
     Route: 048
  8. MULTI-VITAMINS [Concomitant]
     Indication: MACULAR DEGENERATION
     Dosage: UNK
  9. MULTI-VITAMINS [Concomitant]
     Indication: GLAUCOMA
  10. CENTRUM [Concomitant]
     Dosage: UNK
     Route: 048
  11. VITAMIN D3 [Concomitant]
     Dosage: 5000 IU, 1X/DAY
     Route: 048

REACTIONS (2)
  - DRUG INEFFECTIVE [None]
  - SPONTANEOUS PENILE ERECTION [None]
